FAERS Safety Report 10393366 (Version 1)
Quarter: 2014Q3

REPORT INFORMATION
  Report Type: Spontaneous
  Country: IL (occurrence: None)
  Receive Date: 20140815
  Receipt Date: 20140815
  Transmission Date: 20150326
  Serious: Yes (Hospitalization, Other)
  Sender: FDA-Public Use
  Company Number: SYM-2014-23787

PATIENT
  Age: 19 Year
  Sex: Male

DRUGS (1)
  1. MINOCYCLINE [Suspect]
     Active Substance: MINOCYCLINE\MINOCYCLINE HYDROCHLORIDE
     Indication: ACNE
     Dosage: 200 MG 2 IN 1 D

REACTIONS (6)
  - Weight decreased [None]
  - Erythema nodosum [None]
  - Arthralgia [None]
  - Pyrexia [None]
  - Myalgia [None]
  - Cachexia [None]
